FAERS Safety Report 23257252 (Version 3)
Quarter: 2024Q1

REPORT INFORMATION
  Report Type: Spontaneous
  Country: US (occurrence: US)
  Receive Date: 20231204
  Receipt Date: 20240207
  Transmission Date: 20240410
  Serious: Yes (Other)
  Sender: FDA-Public Use
  Company Number: US-AMGEN-USASP2023214063

PATIENT
  Age: 57 Year
  Sex: Female

DRUGS (3)
  1. TAVNEOS [Suspect]
     Active Substance: AVACOPAN
     Indication: Granulomatosis with polyangiitis
     Dosage: 30 MILLIGRAM, BID
     Route: 065
     Dates: start: 20231115, end: 2023
  2. TAVNEOS [Suspect]
     Active Substance: AVACOPAN
     Dosage: UNK UNK, BID/ TWICE DAILY
     Route: 065
     Dates: start: 20231129, end: 2023
  3. TAVNEOS [Suspect]
     Active Substance: AVACOPAN
     Dosage: 30 MILLIGRAM, BID ( 30MG TWICE DAILY )
     Route: 065
     Dates: start: 20231202

REACTIONS (3)
  - Seizure [Unknown]
  - COVID-19 [Unknown]
  - Drug ineffective [Unknown]

NARRATIVE: CASE EVENT DATE: 20231101
